FAERS Safety Report 20225307 (Version 2)
Quarter: 2022Q1

REPORT INFORMATION
  Report Type: Spontaneous
  Country: JP (occurrence: JP)
  Receive Date: 20211224
  Receipt Date: 20220121
  Transmission Date: 20220423
  Serious: Yes (Death, Hospitalization)
  Sender: FDA-Public Use
  Company Number: JP-NOVARTISPH-NVSJ2021JP021223

PATIENT
  Age: 85 Year
  Sex: Male

DRUGS (4)
  1. ENTRESTO [Suspect]
     Active Substance: SACUBITRIL\VALSARTAN
     Indication: Cardiac failure
     Dosage: 400 MG
     Route: 048
     Dates: start: 202106, end: 202111
  2. FUROSEMIDE [Suspect]
     Active Substance: FUROSEMIDE
     Indication: Product used for unknown indication
     Dosage: 40 MG
     Route: 048
     Dates: end: 202111
  3. ASPIRIN [Suspect]
     Active Substance: ASPIRIN
     Indication: Product used for unknown indication
     Dosage: 100 MG
     Route: 048
     Dates: end: 202111
  4. PLAVIX [Suspect]
     Active Substance: CLOPIDOGREL BISULFATE
     Indication: Product used for unknown indication
     Dosage: 75 MG
     Route: 048
     Dates: end: 202111

REACTIONS (7)
  - Renal failure [Fatal]
  - Oedema peripheral [Fatal]
  - Scrotal oedema [Fatal]
  - Marasmus [Fatal]
  - Pneumonia [Fatal]
  - Decreased appetite [Unknown]
  - Feeding disorder [Unknown]

NARRATIVE: CASE EVENT DATE: 20210901
